FAERS Safety Report 9837460 (Version 1)
Quarter: 2013Q4

REPORT INFORMATION
  Report Type: Spontaneous
  Country: US (occurrence: None)
  Receive Date: 20131127
  Receipt Date: 20131127
  Transmission Date: 20140711
  Serious: No
  Sender: FDA-Public Use
  Company Number: 223963

PATIENT
  Sex: Male

DRUGS (1)
  1. PICATO [Suspect]
     Dosage: FOR 3 DAY ON TOP OF HEAD
     Dates: start: 20131007

REACTIONS (1)
  - Drug administration error [None]
